FAERS Safety Report 17713786 (Version 1)
Quarter: 2020Q2

REPORT INFORMATION
  Report Type: Spontaneous
  Country: US (occurrence: US)
  Receive Date: 20200427
  Receipt Date: 20200427
  Transmission Date: 20200714
  Serious: Yes (Hospitalization)
  Sender: FDA-Public Use
  Company Number: None

PATIENT
  Age: 60 Year
  Sex: Female

DRUGS (9)
  1. OMEPRAZOLE 20MG [Concomitant]
     Active Substance: OMEPRAZOLE
  2. VITAMIN D 2000 IU [Concomitant]
  3. MAG-OX 400MG [Concomitant]
  4. UBRELVY [Suspect]
     Active Substance: UBROGEPANT
     Indication: MIGRAINE PROPHYLAXIS
     Route: 048
     Dates: start: 20200309
  5. EXCEDRIN MIGRAINE [Concomitant]
     Active Substance: ACETAMINOPHEN\ASPIRIN\CAFFEINE
  6. BIOTIN 1000MCG [Concomitant]
  7. MULTIPLE VITAMIN [Concomitant]
     Active Substance: VITAMINS
  8. RIZATRIPTAN 10MG [Concomitant]
     Active Substance: RIZATRIPTAN
  9. ONDANSTERON 4MG [Concomitant]

REACTIONS (2)
  - Tachycardia [None]
  - Dizziness [None]

NARRATIVE: CASE EVENT DATE: 20200425
